FAERS Safety Report 8093750-X (Version None)
Quarter: 2012Q1

REPORT INFORMATION
  Report Type: 
  Country: None (occurrence: None)
  Receive Date: 20120129
  Receipt Date: 20111025
  Transmission Date: 20120608
  Serious: No
  Sender: FDA-Public Use
  Company Number: US-ABBOTT-11P-163-0868802-00

PATIENT
  Sex: Female

DRUGS (6)
  1. HUMIRA [Suspect]
     Indication: RHEUMATOID ARTHRITIS
     Route: 058
  2. PROVENTIL [Concomitant]
     Indication: ASTHMA
     Dosage: NOT REPORTED
  3. HUMIRA [Suspect]
     Indication: PROSTATIC SPECIFIC ANTIGEN
  4. SINGULAIR [Concomitant]
     Indication: ASTHMA
     Dosage: NOT REPORTED
  5. HUMIRA [Suspect]
     Indication: ANKYLOSING SPONDYLITIS
  6. DULERA ORAL INHALATION [Concomitant]
     Indication: ASTHMA
     Dosage: NOT REPORTED.

REACTIONS (4)
  - DYSPNOEA [None]
  - NASAL CONGESTION [None]
  - SINUSITIS [None]
  - SINUS HEADACHE [None]
